FAERS Safety Report 9190863 (Version 1)
Quarter: 2013Q1

REPORT INFORMATION
  Report Type: Spontaneous
  Country: GB (occurrence: GB)
  Receive Date: 20130326
  Receipt Date: 20130326
  Transmission Date: 20140127
  Serious: Yes (Other)
  Sender: FDA-Public Use
  Company Number: GB-TEVA-392201ISR

PATIENT
  Age: 43 Year
  Sex: Female
  Weight: 75.29 kg

DRUGS (1)
  1. TERBINAFINE [Suspect]
     Indication: ONYCHOMYCOSIS
     Dosage: 250 MILLIGRAM DAILY;
     Route: 048
     Dates: start: 20120803, end: 20121016

REACTIONS (8)
  - Malaise [Recovered/Resolved]
  - Abdominal pain [Unknown]
  - Urine abnormality [Recovered/Resolved]
  - Dizziness [Recovered/Resolved]
  - Abdominal distension [Unknown]
  - Vulvovaginal candidiasis [Recovered/Resolved]
  - Gamma-glutamyltransferase increased [Recovered/Resolved]
  - Liver function test abnormal [Recovered/Resolved]
